FAERS Safety Report 17424322 (Version 1)
Quarter: 2020Q1

REPORT INFORMATION
  Report Type: Spontaneous
  Country: US (occurrence: US)
  Receive Date: 20200217
  Receipt Date: 20200217
  Transmission Date: 20200409
  Serious: No
  Sender: FDA-Public Use
  Company Number: US-CIPLA LTD.-2019US07620

PATIENT

DRUGS (3)
  1. ARMOUR THYROID [Concomitant]
     Active Substance: THYROID, PORCINE
     Indication: PRODUCT USED FOR UNKNOWN INDICATION
     Dosage: 90 MILLIGRAM, EVERY DAY
     Route: 065
  2. ARMOUR THYROID [Concomitant]
     Active Substance: THYROID, PORCINE
     Dosage: 30 MILLIGRAM, EVERY OTHER DAY
     Route: 065
  3. METOPROLOL. [Suspect]
     Active Substance: METOPROLOL
     Indication: SUPRAVENTRICULAR TACHYCARDIA
     Dosage: 50 MILLIGRAM, QD, EXTENDED RELEASE
     Route: 048

REACTIONS (7)
  - Product substitution issue [Unknown]
  - Pain [Recovering/Resolving]
  - Arthralgia [Recovering/Resolving]
  - Palpitations [Recovering/Resolving]
  - Headache [Recovering/Resolving]
  - Tinnitus [Recovering/Resolving]
  - Insomnia [Recovering/Resolving]
